FAERS Safety Report 24962357 (Version 4)
Quarter: 2025Q1

REPORT INFORMATION
  Report Type: Spontaneous
  Country: JP (occurrence: JP)
  Receive Date: 20250212
  Receipt Date: 20250317
  Transmission Date: 20250408
  Serious: Yes (Hospitalization)
  Sender: ELI LILLY AND COMPANY
  Company Number: JP-ELI_LILLY_AND_COMPANY-JP202502003715

PATIENT
  Age: 59 Year
  Sex: Male
  Weight: 87 kg

DRUGS (12)
  1. EBGLYSS [Suspect]
     Active Substance: LEBRIKIZUMAB-LBKZ
     Indication: Dermatitis atopic
     Route: 058
     Dates: start: 20241116, end: 20241130
  2. EBGLYSS [Suspect]
     Active Substance: LEBRIKIZUMAB-LBKZ
     Route: 058
     Dates: start: 20241214, end: 20250125
  3. RUPAFIN [Concomitant]
     Active Substance: RUPATADINE FUMARATE
     Route: 048
     Dates: start: 20241214
  4. MONTELUKAST [Concomitant]
     Active Substance: MONTELUKAST
     Route: 048
     Dates: start: 20241214
  5. MOMETASONE [Concomitant]
     Active Substance: MOMETASONE
     Route: 045
     Dates: start: 20241214
  6. METFORMIN HYDROCHLORIDE [Concomitant]
     Active Substance: METFORMIN HYDROCHLORIDE
  7. ELIQUIS [Concomitant]
     Active Substance: APIXABAN
  8. BISOPROLOL FUMARATE [Concomitant]
     Active Substance: BISOPROLOL FUMARATE
  9. DIGOXIN [Concomitant]
     Active Substance: DIGOXIN
  10. VERAPAMIL HYDROCHLORIDE [Concomitant]
     Active Substance: VERAPAMIL HYDROCHLORIDE
  11. PITAVASTATIN CALCIUM [Concomitant]
     Active Substance: PITAVASTATIN CALCIUM
  12. FEBUXOSTAT [Concomitant]
     Active Substance: FEBUXOSTAT

REACTIONS (2)
  - Diabetes mellitus [Unknown]
  - Dermatitis atopic [Recovering/Resolving]

NARRATIVE: CASE EVENT DATE: 20241214
